APPROVED DRUG PRODUCT: METHYLPHENIDATE HYDROCHLORIDE
Active Ingredient: METHYLPHENIDATE HYDROCHLORIDE
Strength: 2.5MG
Dosage Form/Route: TABLET, CHEWABLE;ORAL
Application: A204115 | Product #001
Applicant: NOVEL LABORATORIES INC
Approved: Feb 25, 2015 | RLD: No | RS: No | Type: DISCN